FAERS Safety Report 9395629 (Version 2)
Quarter: 2015Q1

REPORT INFORMATION
  Report Type: Spontaneous
  Country: CZ (occurrence: CZ)
  Receive Date: 20130711
  Receipt Date: 20150113
  Transmission Date: 20150721
  Serious: Yes (Death, Hospitalization)
  Sender: FDA-Public Use
  Company Number: PHHY2013CZ073076

PATIENT
  Age: 77 Year
  Sex: Male

DRUGS (1)
  1. METRONIDAZOLE. [Suspect]
     Active Substance: METRONIDAZOLE
     Indication: CLOSTRIDIUM COLITIS
     Route: 065

REACTIONS (6)
  - Vomiting [Unknown]
  - Gastroenteritis eosinophilic [Unknown]
  - Diarrhoea [Unknown]
  - Abdominal pain [Unknown]
  - Eosinophilia [Recovering/Resolving]
  - Gastric cancer [Fatal]

NARRATIVE: CASE EVENT DATE: 201206
